FAERS Safety Report 8564403-6 (Version None)
Quarter: 2012Q3

REPORT INFORMATION
  Report Type: 
  Country: None (occurrence: None)
  Receive Date: 20120723
  Receipt Date: 20120712
  Transmission Date: 20120928
  Serious: Yes (Hospitalization, Other)
  Sender: FDA-Public Use
  Company Number: 2012HGS-003589

PATIENT
  Age: 32 Year
  Sex: Female

DRUGS (5)
  1. PREDNISONE [Concomitant]
  2. METHOTREXATE [Concomitant]
  3. BARIUM (BARIUM) [Suspect]
  4. BENLYSTA [Suspect]
     Dosage: INTRAVENOUS DRIP
     Route: 041
  5. PENTASA (MESALAZINE) (MESALAZINE) [Concomitant]

REACTIONS (2)
  - DYSTONIA [None]
  - CONTRAST MEDIA REACTION [None]
